FAERS Safety Report 6493932-4 (Version None)
Quarter: 2009Q4

REPORT INFORMATION
  Report Type: 
  Country: None (occurrence: None)
  Receive Date: 20091214
  Receipt Date: 20081125
  Transmission Date: 20100525
  Serious: No
  Sender: FDA-Public Use
  Company Number: US-BRISTOL-MYERS SQUIBB COMPANY-14420442

PATIENT
  Age: 60 Year
  Sex: Female
  Weight: 136 kg

DRUGS (5)
  1. ABILIFY [Suspect]
     Indication: BIPOLAR DISORDER
     Dosage: STARTED 15MG TITRATED TO 30MG IN 6/2005
  2. LAMICTAL [Concomitant]
  3. LEXAPRO [Concomitant]
  4. LUNESTA [Concomitant]
  5. KLONOPIN [Concomitant]

REACTIONS (1)
  - TARDIVE DYSKINESIA [None]
